FAERS Safety Report 6306294-X (Version None)
Quarter: 2009Q3

REPORT INFORMATION
  Report Type: 
  Country: None (occurrence: None)
  Receive Date: 20090810
  Receipt Date: 20090729
  Transmission Date: 20100115
  Serious: Yes (Other)
  Sender: FDA-Public Use
  Company Number: 2009AL005057

PATIENT
  Sex: Male

DRUGS (1)
  1. FEVERALL [Suspect]

REACTIONS (4)
  - EYELID OEDEMA [None]
  - HYPERSENSITIVITY [None]
  - MALAISE [None]
  - SWOLLEN TONGUE [None]
